FAERS Safety Report 4351789-1 (Version None)
Quarter: 2004Q2

REPORT INFORMATION
  Report Type: 
  Country: None (occurrence: None)
  Receive Date: 20040429
  Receipt Date: 20040305
  Transmission Date: 20050107
  Serious: No
  Sender: FDA-Public Use
  Company Number: 2004-113793-NL

PATIENT
  Age: 44 Year
  Sex: Female
  Weight: 75 kg

DRUGS (4)
  1. NUVARING [Suspect]
     Indication: CONTRACEPTION
     Dates: start: 20040211
  2. MULTI-VITAMINS [Concomitant]
  3. OMEGA [Concomitant]
  4. PAMELOR [Concomitant]

REACTIONS (1)
  - METRORRHAGIA [None]
